FAERS Safety Report 16348942 (Version 2)
Quarter: 2019Q2

REPORT INFORMATION
  Report Type: Spontaneous
  Country: US (occurrence: US)
  Receive Date: 20190523
  Receipt Date: 20190603
  Transmission Date: 20190711
  Serious: No
  Sender: FDA-Public Use
  Company Number: US-PFIZER INC-2019218522

PATIENT
  Age: 80 Year
  Sex: Female
  Weight: 86.17 kg

DRUGS (19)
  1. ASPIRIN. [Suspect]
     Active Substance: ASPIRIN
     Dosage: UNK
  2. STARCH [Suspect]
     Active Substance: STARCH
     Dosage: UNK
  3. VITAMIN E ACETATE [Suspect]
     Active Substance: .ALPHA.-TOCOPHEROL ACETATE
     Dosage: UNK
  4. MINERAL OIL. [Suspect]
     Active Substance: MINERAL OIL
     Dosage: UNK
  5. ASPARTAME [Suspect]
     Active Substance: ASPARTAME
     Dosage: UNK
  6. FLUTICASONE PROPIONATE. [Suspect]
     Active Substance: FLUTICASONE PROPIONATE
     Dosage: UNK
  7. ADVAIR HFA [Suspect]
     Active Substance: FLUTICASONE PROPIONATE\SALMETEROL XINAFOATE
     Dosage: UNK
  8. BENZOCAINE. [Suspect]
     Active Substance: BENZOCAINE
     Dosage: UNK
  9. TOLTERODINE TARTRATE. [Suspect]
     Active Substance: TOLTERODINE TARTRATE
     Dosage: UNK
  10. ALBUTEROL. [Suspect]
     Active Substance: ALBUTEROL
     Dosage: UNK
  11. PHENAZOPYRIDINE HCL [Suspect]
     Active Substance: PHENAZOPYRIDINE HYDROCHLORIDE
     Dosage: UNK
  12. ASA [Suspect]
     Active Substance: ASPIRIN
     Dosage: UNK
  13. EPINEPHRINE. [Suspect]
     Active Substance: EPINEPHRINE
     Dosage: UNK
  14. VITAMIN A + D [Suspect]
     Active Substance: ERGOCALCIFEROL\RETINOL
     Dosage: UNK
  15. SITAGLIPTIN [Suspect]
     Active Substance: SITAGLIPTIN
     Dosage: UNK
  16. MONOSODIUM GLUTAMATE [Suspect]
     Active Substance: MONOSODIUM GLUTAMATE
     Dosage: UNK
  17. RESORCINOL [Suspect]
     Active Substance: RESORCINOL
     Dosage: UNK
  18. BUDESONIDE. [Suspect]
     Active Substance: BUDESONIDE
     Dosage: UNK
  19. SALMETEROL XINAFOATE [Suspect]
     Active Substance: SALMETEROL XINAFOATE
     Dosage: UNK

REACTIONS (1)
  - Drug hypersensitivity [Unknown]
